FAERS Safety Report 5923109-X (Version None)
Quarter: 2008Q4

REPORT INFORMATION
  Report Type: 
  Country: None (occurrence: None)
  Receive Date: 20081018
  Receipt Date: 20081006
  Transmission Date: 20090506
  Serious: Yes (Other)
  Sender: FDA-Public Use
  Company Number: BR-PFIZER INC-2008085796

PATIENT
  Sex: Female
  Weight: 68 kg

DRUGS (4)
  1. CHAMPIX [Suspect]
     Indication: TOBACCO ABUSE
     Dosage: TEXT:1 TABLET BID EVERY DAY TDD:2 TABLETS
     Route: 048
     Dates: start: 20080906
  2. CHONDROITIN/GLUCOSAMINE [Concomitant]
     Route: 065
     Dates: start: 20080401
  3. CENTRUM [Concomitant]
     Route: 065
     Dates: start: 20080801
  4. GINKGO BILOBA [Concomitant]
     Route: 065

REACTIONS (7)
  - DECREASED APPETITE [None]
  - DRUG DOSE OMISSION [None]
  - DYSGEUSIA [None]
  - INTENTIONAL DRUG MISUSE [None]
  - MALAISE [None]
  - NAUSEA [None]
  - THROAT TIGHTNESS [None]
